FAERS Safety Report 5491727-1 (Version None)
Quarter: 2007Q4

REPORT INFORMATION
  Report Type: 
  Country: None (occurrence: None)
  Receive Date: 20071022
  Receipt Date: 20071015
  Transmission Date: 20080405
  Serious: Yes (Life-Threatening, Hospitalization, Other)
  Sender: FDA-Public Use
  Company Number: GB-BAYER-200711093BNE

PATIENT
  Age: 82 Year
  Sex: Male
  Weight: 80 kg

DRUGS (6)
  1. ASPIRIN [Suspect]
     Dosage: TOTAL DAILY DOSE: 75 MG
     Route: 048
     Dates: start: 19970101
  2. DICLOFENAC [Suspect]
     Dosage: TOTAL DAILY DOSE: 150 MG
     Route: 048
     Dates: start: 19980101
  3. ATORVASTATIN [Concomitant]
     Dosage: TOTAL DAILY DOSE: 10 MG
     Route: 048
  4. DIGOXIN [Concomitant]
     Dosage: TOTAL DAILY DOSE: 250 ?G
     Route: 048
  5. FELODIPINE [Concomitant]
     Dosage: TOTAL DAILY DOSE: 5 MG
     Route: 048
  6. FRUSEMIDE [Concomitant]
     Dosage: TOTAL DAILY DOSE: 40 MG
     Route: 048

REACTIONS (1)
  - GASTRIC ULCER PERFORATION [None]
